FAERS Safety Report 7049782 (Version 3)
Quarter: 2016Q2

REPORT INFORMATION
  Report Type: Spontaneous
  Country: US (occurrence: US)
  Receive Date: 20090714
  Receipt Date: 20160623
  Transmission Date: 20160815
  Serious: Yes (Death, Hospitalization, Other)
  Sender: FDA-Public Use
  Company Number: US-AMGEN-QUU354763

PATIENT
  Sex: Female
  Weight: 33.56 kg

DRUGS (1)
  1. ENBREL [Suspect]
     Active Substance: ETANERCEPT
     Indication: PRODUCT USED FOR UNKNOWN INDICATION
     Dosage: UNK UNK, UNK
     Route: 065
     Dates: start: 20010101, end: 20090620

REACTIONS (5)
  - Musculoskeletal disorder [Unknown]
  - Death [Fatal]
  - Non-Hodgkin^s lymphoma [Unknown]
  - Electrolyte imbalance [Unknown]
  - Gastrointestinal infection [Unknown]

NARRATIVE: CASE EVENT DATE: 2005
